FAERS Safety Report 6025109-0 (Version None)
Quarter: 2008Q4

REPORT INFORMATION
  Report Type: 
  Country: None (occurrence: None)
  Receive Date: 20081231
  Receipt Date: 20081219
  Transmission Date: 20090506
  Serious: Yes (Hospitalization, Other)
  Sender: FDA-Public Use
  Company Number: US-PFIZER INC-2006022665

PATIENT
  Sex: Female
  Weight: 77.1 kg

DRUGS (17)
  1. NEURONTIN [Suspect]
     Dosage: 400 MG, 3X/DAY
     Route: 065
     Dates: start: 20060127, end: 20060201
  2. LYRICA [Suspect]
     Dosage: 200 MG, 3X/DAY
     Dates: start: 20060101, end: 20071025
  3. OXYCODONE [Concomitant]
  4. DEMEROL [Concomitant]
     Route: 065
  5. REMERON [Concomitant]
     Route: 065
  6. LEVOXYL [Concomitant]
     Route: 065
  7. SOMA [Concomitant]
     Route: 065
  8. KLOR-CON [Concomitant]
     Route: 065
  9. AMITRIPTYLINE [Concomitant]
     Route: 065
  10. DIAZEPAM [Concomitant]
     Route: 065
  11. VALSARTAN [Concomitant]
     Route: 065
  12. PROTONIX [Concomitant]
     Route: 065
  13. ATENOLOL [Concomitant]
     Route: 065
  14. LASIX [Concomitant]
     Route: 065
  15. GUAIFENESIN [Concomitant]
     Route: 065
  16. FENTANYL-100 [Concomitant]
     Route: 062
     Dates: end: 20051001
  17. METHADON HCL TAB [Concomitant]
     Route: 065
     Dates: end: 20051001

REACTIONS (16)
  - ABASIA [None]
  - AMNESIA [None]
  - ANXIETY [None]
  - BALANCE DISORDER [None]
  - BLOOD GLUCOSE INCREASED [None]
  - BLOOD PRESSURE INCREASED [None]
  - BONE DISORDER [None]
  - DIZZINESS [None]
  - DYSARTHRIA [None]
  - FALL [None]
  - FRACTURE [None]
  - HALLUCINATION [None]
  - HEART RATE INCREASED [None]
  - SOMNOLENCE [None]
  - WALKING AID USER [None]
  - WEIGHT INCREASED [None]
